FAERS Safety Report 17399991 (Version 1)
Quarter: 2020Q1

REPORT INFORMATION
  Report Type: Spontaneous
  Country: US (occurrence: US)
  Receive Date: 20200211
  Receipt Date: 20200211
  Transmission Date: 20200409
  Serious: No
  Sender: FDA-Public Use
  Company Number: US-SUN PHARMACEUTICAL INDUSTRIES LTD-2019R1-223985

PATIENT
  Sex: Female

DRUGS (1)
  1. DESMOPRESSIN [Suspect]
     Active Substance: DESMOPRESSIN
     Dosage: UNK

REACTIONS (5)
  - Malaise [Unknown]
  - Oropharyngeal discomfort [Unknown]
  - Product odour abnormal [Unknown]
  - Ear pain [Unknown]
  - Sinusitis [Unknown]
